FAERS Safety Report 7507514-6 (Version None)
Quarter: 2011Q2

REPORT INFORMATION
  Report Type: 
  Country: None (occurrence: None)
  Receive Date: 20110526
  Receipt Date: 20100915
  Transmission Date: 20111010
  Serious: No
  Sender: FDA-Public Use
  Company Number: US-MYLANLABS-2010S1017005

PATIENT
  Sex: Male
  Weight: 70.31 kg

DRUGS (1)
  1. ZOLPIDEM TARTRATE [Suspect]
     Indication: INSOMNIA
     Route: 048

REACTIONS (3)
  - DRUG EFFECT DECREASED [None]
  - INSOMNIA [None]
  - SOMNOLENCE [None]
